FAERS Safety Report 16740978 (Version 6)
Quarter: 2019Q4

REPORT INFORMATION
  Report Type: Spontaneous
  Country: US (occurrence: US)
  Receive Date: 20190826
  Receipt Date: 20191105
  Transmission Date: 20200122
  Serious: No
  Sender: FDA-Public Use
  Company Number: US-ACTELION-A-NJ2019-194705

PATIENT
  Sex: Female
  Weight: 117.91 kg

DRUGS (4)
  1. UPTRAVI [Suspect]
     Active Substance: SELEXIPAG
     Indication: PULMONARY ARTERIAL HYPERTENSION
     Dosage: 1600 MCG, BID
     Route: 048
  2. OPSUMIT [Suspect]
     Active Substance: MACITENTAN
     Indication: PULMONARY ARTERIAL HYPERTENSION
     Dosage: 10 MG, QD
     Route: 048
  3. TADALAFIL. [Concomitant]
     Active Substance: TADALAFIL
  4. ADEMPAS [Concomitant]
     Active Substance: RIOCIGUAT

REACTIONS (11)
  - Oedema [Unknown]
  - Throat irritation [Unknown]
  - Oedema peripheral [Unknown]
  - Nasopharyngitis [Unknown]
  - Sleep apnoea syndrome [Unknown]
  - Dizziness [Unknown]
  - Cough [Unknown]
  - Headache [Unknown]
  - Ascites [Unknown]
  - Sinus congestion [Unknown]
  - Fatigue [Unknown]
